FAERS Safety Report 7608270-3 (Version None)
Quarter: 2011Q3

REPORT INFORMATION
  Report Type: 
  Country: None (occurrence: None)
  Receive Date: 20110714
  Receipt Date: 20110711
  Transmission Date: 20111222
  Serious: Yes (Life-Threatening, Disabling, Other)
  Sender: FDA-Public Use
  Company Number: US-PFIZER INC-2011157033

PATIENT
  Age: 88 Year
  Sex: Male

DRUGS (5)
  1. GABAPENTIN [Suspect]
     Dosage: 300 MG, UNK
  2. DECADRON [Suspect]
     Indication: INFLAMMATION
     Dosage: 4 MG/ML, 1X/DAY
     Route: 042
     Dates: start: 20110407, end: 20110407
  3. SEROQUEL [Suspect]
     Dosage: UNK
  4. FORADIL [Concomitant]
     Dosage: UNK
  5. DILAUDID [Suspect]
     Dosage: UNK

REACTIONS (6)
  - CONFUSIONAL STATE [None]
  - FATIGUE [None]
  - OXYGEN SATURATION DECREASED [None]
  - OXYGEN CONSUMPTION INCREASED [None]
  - PSYCHOTIC DISORDER [None]
  - APHASIA [None]
